FAERS Safety Report 14259226 (Version 2)
Quarter: 2018Q1

REPORT INFORMATION
  Report Type: Spontaneous
  Country: FR (occurrence: FR)
  Receive Date: 20171207
  Receipt Date: 20180221
  Transmission Date: 20180508
  Serious: Yes (Other)
  Sender: FDA-Public Use
  Company Number: FR-BAYER-2017-229905

PATIENT
  Age: 51 Year
  Sex: Male

DRUGS (3)
  1. STIVARGA [Suspect]
     Active Substance: REGORAFENIB
     Indication: COLON CANCER
     Dosage: 80 MG PER DAY
     Dates: start: 20170602, end: 2017
  2. STIVARGA [Suspect]
     Active Substance: REGORAFENIB
     Indication: COLON CANCER
     Dosage: DAILY DOSE 80 MG
     Dates: start: 20170925, end: 2017
  3. STIVARGA [Suspect]
     Active Substance: REGORAFENIB
     Indication: COLON CANCER
     Dosage: DAILY DOSE 120 MG
     Dates: start: 20171023

REACTIONS (7)
  - Pancreatic mass [None]
  - Jaundice [None]
  - Off label use [None]
  - Metastases to lung [None]
  - Metastases to peritoneum [None]
  - Cholangitis [None]
  - Metastases to pancreas [None]

NARRATIVE: CASE EVENT DATE: 20170602
